FAERS Safety Report 21987390 (Version 2)
Quarter: 2024Q1

REPORT INFORMATION
  Report Type: Spontaneous
  Country: GB (occurrence: GB)
  Receive Date: 20230214
  Receipt Date: 20240209
  Transmission Date: 20240410
  Serious: No
  Sender: FDA-Public Use
  Company Number: None

PATIENT
  Age: 65 Year
  Sex: Female
  Weight: 57 kg

DRUGS (7)
  1. CEPHALEXIN [Suspect]
     Active Substance: CEPHALEXIN
     Indication: Product used for unknown indication
     Dosage: UNK (CAPSULE)
     Route: 065
     Dates: start: 20220322
  2. AMOXICILLIN [Concomitant]
     Active Substance: AMOXICILLIN
     Indication: Product used for unknown indication
     Dosage: UNK, TID (TAKE ONE 3 TIMES A DAY FOR 5 DAYS)
     Route: 065
     Dates: start: 20220902
  3. BETAMETHASONE VALERATE [Concomitant]
     Active Substance: BETAMETHASONE VALERATE
     Indication: Product used for unknown indication
     Dosage: UNK (APPLY ONCE OR TWICE DAILY FOR UPTO 2 WEEKS)
     Route: 065
     Dates: start: 20211006
  4. BISOPROLOL [Concomitant]
     Active Substance: BISOPROLOL\BISOPROLOL FUMARATE
     Indication: Cardiac failure
     Dosage: UNK, QD (TAKE ONE DAILY TO REDUCE HEART STRAIN/FAILURE)
     Route: 065
     Dates: start: 20211006
  5. DOXYCYCLINE [Concomitant]
     Active Substance: DOXYCYCLINE
     Indication: Product used for unknown indication
     Dosage: UNK(TAKE TWO NOW THEN ONE DAILY FOR 4 DAYS TO TREAT)
     Route: 065
     Dates: start: 20220816, end: 20220821
  6. RAMIPRIL [Concomitant]
     Active Substance: RAMIPRIL
     Indication: Blood pressure measurement
     Dosage: UNK, QD (TAKE ONE DAILY TO LOWER BLOOD PRESSURE)
     Route: 065
     Dates: start: 20211006
  7. RIVAROXABAN [Concomitant]
     Active Substance: RIVAROXABAN
     Indication: Product used for unknown indication
     Dosage: UNK, QD (TAKE ONE DAILY WITH FOOD (MAKE SURE PT HAS ALER)
     Route: 065
     Dates: start: 20211006

REACTIONS (1)
  - Rash [Recovered/Resolved]
